FAERS Safety Report 19617686 (Version 7)
Quarter: 2021Q3

REPORT INFORMATION
  Report Type: Report from Study
  Country: CN (occurrence: CN)
  Receive Date: 20210728
  Receipt Date: 20210915
  Transmission Date: 20211014
  Serious: Yes (Hospitalization)
  Sender: FDA-Public Use
  Company Number: CN-ROCHE-2874861

PATIENT
  Age: 71 Year
  Sex: Male
  Weight: 61 kg

DRUGS (79)
  1. RECOMBINANT HUMAN GRANULOCYTE COLONY STIMULATING FACTOR (UNK INGREDIEN [Concomitant]
     Dates: start: 20210813, end: 20210817
  2. LEUCOGEN [Concomitant]
     Active Substance: LEUCOGEN
     Dates: start: 20210716, end: 20210720
  3. ZOLEDRONIC ACID [Concomitant]
     Active Substance: ZOLEDRONIC ACID
     Dates: start: 20210630, end: 20210630
  4. ZOLEDRONIC ACID [Concomitant]
     Active Substance: ZOLEDRONIC ACID
     Dates: start: 20210723, end: 20210723
  5. PANTOPRAZOLE SODIUM. [Concomitant]
     Active Substance: PANTOPRAZOLE SODIUM
     Indication: PROPHYLAXIS
     Dates: start: 20210629, end: 20210629
  6. DEXAMETHASONE SODIUM PHOSPHATE. [Concomitant]
     Active Substance: DEXAMETHASONE SODIUM PHOSPHATE
     Route: 042
     Dates: start: 20210607, end: 20210608
  7. DEXAMETHASONE SODIUM PHOSPHATE. [Concomitant]
     Active Substance: DEXAMETHASONE SODIUM PHOSPHATE
     Route: 042
     Dates: start: 20210811, end: 20210811
  8. ONDANSETRON HYDROCHLORIDE. [Concomitant]
     Active Substance: ONDANSETRON HYDROCHLORIDE
     Dates: start: 20210812, end: 20210818
  9. MANNITOL. [Concomitant]
     Active Substance: MANNITOL
     Dates: start: 20210706, end: 20210710
  10. LACTULOSE. [Concomitant]
     Active Substance: LACTULOSE
     Route: 048
     Dates: start: 20210723, end: 20210731
  11. LEUCOGEN [Concomitant]
     Active Substance: LEUCOGEN
     Dates: start: 20210728, end: 20210804
  12. HEPARIN SODIUM. [Concomitant]
     Active Substance: HEPARIN SODIUM
     Dates: start: 20210722, end: 20210722
  13. LEUCOGEN [Concomitant]
     Active Substance: LEUCOGEN
     Indication: PROPHYLAXIS
     Dates: start: 20210728, end: 20210804
  14. LEUCOGEN [Concomitant]
     Active Substance: LEUCOGEN
     Dates: start: 20210831
  15. SUCRALFATE. [Concomitant]
     Active Substance: SUCRALFATE
     Indication: ABDOMINAL DISCOMFORT
     Route: 048
     Dates: start: 20210727, end: 20210802
  16. OMEPRAZOLE. [Concomitant]
     Active Substance: OMEPRAZOLE
     Dates: start: 20210727, end: 20210802
  17. RECOMBINANT HUMAN GRANULOCYTE COLONY STIMULATING FACTOR (UNK INGREDIEN [Concomitant]
     Dates: start: 20210616, end: 20210617
  18. LEUCOGEN [Concomitant]
     Active Substance: LEUCOGEN
     Dates: start: 20210710, end: 20210715
  19. RECOMBINANT HUMAN THROMBOPOIETIN [Concomitant]
     Active Substance: THROMBOPOIETIN
     Dates: start: 20210818, end: 20210828
  20. PIPERACILLIN AND TAZOBACTAM [Concomitant]
     Active Substance: PIPERACILLIN SODIUM\TAZOBACTAM SODIUM
     Dates: start: 20210709, end: 20210710
  21. CARBOPLATIN. [Suspect]
     Active Substance: CARBOPLATIN
     Indication: NON-SMALL CELL LUNG CANCER STAGE IV
     Dosage: START DATE OF MOST RECENT DOSE ( 500 MG) OF STUDY DRUG PRIOR TO AE/SAE 29?JUN?2021
     Route: 042
     Dates: start: 20210607
  22. LEUCOGEN [Concomitant]
     Active Substance: LEUCOGEN
     Dates: start: 20210720, end: 20210727
  23. ZOLEDRONIC ACID [Concomitant]
     Active Substance: ZOLEDRONIC ACID
     Indication: PROPHYLAXIS
     Dates: start: 20210618, end: 20210618
  24. DICLOFENAC SODIUM. [Concomitant]
     Active Substance: DICLOFENAC SODIUM
     Indication: ANALGESIC THERAPY
     Route: 048
     Dates: start: 20210629, end: 20210629
  25. PALONOSETRON HYDROCHLORIDE. [Concomitant]
     Active Substance: PALONOSETRON HYDROCHLORIDE
     Indication: PROPHYLAXIS OF NAUSEA AND VOMITING
     Dates: start: 20210629, end: 20210629
  26. PALONOSETRON HYDROCHLORIDE. [Concomitant]
     Active Substance: PALONOSETRON HYDROCHLORIDE
     Dates: start: 20210607, end: 20210607
  27. PANTOPRAZOLE SODIUM. [Concomitant]
     Active Substance: PANTOPRAZOLE SODIUM
     Dates: start: 20210811
  28. DEXAMETHASONE SODIUM PHOSPHATE. [Concomitant]
     Active Substance: DEXAMETHASONE SODIUM PHOSPHATE
     Route: 042
     Dates: start: 20210722, end: 20210722
  29. DEXAMETHASONE SODIUM PHOSPHATE. [Concomitant]
     Active Substance: DEXAMETHASONE SODIUM PHOSPHATE
     Route: 042
     Dates: start: 20210831, end: 20210831
  30. ONDANSETRON HYDROCHLORIDE. [Concomitant]
     Active Substance: ONDANSETRON HYDROCHLORIDE
     Dates: start: 20210723, end: 20210728
  31. CALCIUM CARBONATE AND VITAMIN D3 [Concomitant]
     Active Substance: CALCIUM CARBONATE\CHOLECALCIFEROL
     Route: 048
     Dates: start: 20210630
  32. RECOMBINANT HUMAN INTERLEUKIN?11 [Concomitant]
     Active Substance: OPRELVEKIN
     Dates: start: 20210617, end: 20210619
  33. MEGESTROL ACETATE. [Concomitant]
     Active Substance: MEGESTROL ACETATE
     Indication: DECREASED APPETITE
     Dates: start: 20210723, end: 20210801
  34. MEGESTROL ACETATE. [Concomitant]
     Active Substance: MEGESTROL ACETATE
     Dates: start: 20210812, end: 20210821
  35. OMEPRAZOLE. [Concomitant]
     Active Substance: OMEPRAZOLE
     Indication: ABDOMINAL DISCOMFORT
     Route: 048
     Dates: start: 20210727, end: 20210802
  36. RECOMBINANT HUMAN GRANULOCYTE COLONY STIMULATING FACTOR (UNK INGREDIEN [Concomitant]
     Dates: start: 20210706, end: 20210706
  37. LEUCOGEN [Concomitant]
     Active Substance: LEUCOGEN
     Dates: start: 20210608, end: 20210615
  38. PALONOSETRON HYDROCHLORIDE. [Concomitant]
     Active Substance: PALONOSETRON HYDROCHLORIDE
     Dates: start: 20210831, end: 20210831
  39. DEXAMETHASONE SODIUM PHOSPHATE. [Concomitant]
     Active Substance: DEXAMETHASONE SODIUM PHOSPHATE
     Route: 042
     Dates: start: 20210812, end: 20210812
  40. ONDANSETRON HYDROCHLORIDE. [Concomitant]
     Active Substance: ONDANSETRON HYDROCHLORIDE
     Indication: PROPHYLAXIS OF NAUSEA AND VOMITING
     Dates: start: 20210630, end: 20210706
  41. RECOMBINANT HUMAN THROMBOPOIETIN [Concomitant]
     Active Substance: THROMBOPOIETIN
     Dates: start: 20210807, end: 20210809
  42. LACTULOSE. [Concomitant]
     Active Substance: LACTULOSE
     Route: 048
     Dates: start: 20210812, end: 20210818
  43. RECOMBINANT HUMAN GRANULOCYTE COLONY STIMULATING FACTOR (UNK INGREDIEN [Concomitant]
     Dates: start: 20210622, end: 20210624
  44. RECOMBINANT HUMAN GRANULOCYTE COLONY STIMULATING FACTOR (UNK INGREDIEN [Concomitant]
     Dates: start: 20210717, end: 20210719
  45. LEUCOGEN [Concomitant]
     Active Substance: LEUCOGEN
     Indication: PROPHYLAXIS
     Dates: start: 20210616, end: 20210628
  46. ZOLEDRONIC ACID [Concomitant]
     Active Substance: ZOLEDRONIC ACID
     Dates: start: 20210812, end: 20210812
  47. PANTOPRAZOLE SODIUM. [Concomitant]
     Active Substance: PANTOPRAZOLE SODIUM
     Dates: start: 20210607, end: 20210608
  48. PANTOPRAZOLE SODIUM. [Concomitant]
     Active Substance: PANTOPRAZOLE SODIUM
     Dates: start: 20210831, end: 20210831
  49. ORYZ?ASPERGILLUS ENZYME AND PANCREATIN [Concomitant]
     Dates: start: 20210705, end: 20210724
  50. POTASSIUM CHLORIDE. [Concomitant]
     Active Substance: POTASSIUM CHLORIDE
     Dates: start: 20210705, end: 20210710
  51. RECOMBINANT HUMAN THROMBOPOIETIN [Concomitant]
     Active Substance: THROMBOPOIETIN
     Dates: start: 20210620, end: 20210627
  52. RECOMBINANT HUMAN THROMBOPOIETIN [Concomitant]
     Active Substance: THROMBOPOIETIN
     Dates: start: 20210717, end: 20210719
  53. HEPARIN SODIUM. [Concomitant]
     Active Substance: HEPARIN SODIUM
     Dates: start: 202107, end: 202107
  54. RECOMBINANT HUMAN ERYTHROPOIETIN INJECTION (CHO CELL) [Concomitant]
     Indication: ANAEMIA
     Dates: start: 20210807, end: 20210811
  55. ATEZOLIZUMAB. [Suspect]
     Active Substance: ATEZOLIZUMAB
     Indication: NON-SMALL CELL LUNG CANCER STAGE IV
     Dosage: START DATE OF MOST RECENT DOSE OF STUDY DRUG?PRIOR TO AE/SAE 29?JUN?2021
     Route: 041
     Dates: start: 20210607
  56. BEVACIZUMAB. [Suspect]
     Active Substance: BEVACIZUMAB
     Indication: NON-SMALL CELL LUNG CANCER STAGE IV
     Dosage: START DATE OF MOST RECENT DOSE (945 MG) OF STUDY DRUG?PRIOR TO AE/SAE  29?JUN?2021
     Route: 042
     Dates: start: 20210607
  57. PEMETREXED. [Suspect]
     Active Substance: PEMETREXED
     Indication: NON-SMALL CELL LUNG CANCER STAGE IV
     Dosage: START DATE OF MOST RECENT DOSE (830 MG) OF STUDY DRUG?PRIOR TO AE/SAE 29?JUN?2021
     Route: 042
     Dates: start: 20210607
  58. RECOMBINANT HUMAN GRANULOCYTE COLONY STIMULATING FACTOR (UNK INGREDIEN [Concomitant]
     Dates: start: 20210618, end: 20210619
  59. LEUCOGEN [Concomitant]
     Active Substance: LEUCOGEN
     Dates: start: 20210706, end: 20210709
  60. LEUCOGEN [Concomitant]
     Active Substance: LEUCOGEN
     Dates: start: 20210805, end: 20210818
  61. DICLOFENAC SODIUM AND LIDOCAINE HYDROCHLORIDE [Concomitant]
     Indication: ANAESTHESIA
     Dates: start: 20210629, end: 20210629
  62. PALONOSETRON HYDROCHLORIDE. [Concomitant]
     Active Substance: PALONOSETRON HYDROCHLORIDE
     Dates: start: 20210722, end: 20210722
  63. PALONOSETRON HYDROCHLORIDE. [Concomitant]
     Active Substance: PALONOSETRON HYDROCHLORIDE
     Dates: start: 20210811, end: 20210811
  64. PANTOPRAZOLE SODIUM. [Concomitant]
     Active Substance: PANTOPRAZOLE SODIUM
     Dates: start: 20210722, end: 20210722
  65. ONDANSETRON HYDROCHLORIDE. [Concomitant]
     Active Substance: ONDANSETRON HYDROCHLORIDE
     Dates: start: 20210608, end: 20210614
  66. ALANYL GLUTAMINE [Concomitant]
     Active Substance: ALANYL GLUTAMINE
     Dates: start: 20210705, end: 20210710
  67. HEPARIN SODIUM. [Concomitant]
     Active Substance: HEPARIN SODIUM
     Dates: start: 20210629, end: 20210629
  68. HEPARIN SODIUM. [Concomitant]
     Active Substance: HEPARIN SODIUM
     Dates: start: 20210811, end: 20210811
  69. HEPARIN SODIUM. [Concomitant]
     Active Substance: HEPARIN SODIUM
     Dates: start: 20210831, end: 20210831
  70. COMPOUND AMINO ACID (18AA?II) [Concomitant]
     Active Substance: AMINO ACIDS
  71. RECOMBINANT HUMAN ERYTHROPOIETIN INJECTION (CHO CELL) [Concomitant]
     Dates: start: 20210818, end: 20210828
  72. RECOMBINANT HUMAN ERYTHROPOIETIN INJECTION (CHO CELL) [Concomitant]
     Dates: start: 20210823
  73. LEUCOGEN [Concomitant]
     Active Substance: LEUCOGEN
     Dates: start: 20210629
  74. LEUCOGEN [Concomitant]
     Active Substance: LEUCOGEN
     Dates: start: 20210831
  75. DEXAMETHASONE SODIUM PHOSPHATE. [Concomitant]
     Active Substance: DEXAMETHASONE SODIUM PHOSPHATE
     Route: 042
     Dates: start: 20210629, end: 20210629
  76. CELECOXIB. [Concomitant]
     Active Substance: CELECOXIB
     Indication: ANALGESIC THERAPY
     Dates: start: 20210630
  77. ESOMEPRAZOLE SODIUM. [Concomitant]
     Active Substance: ESOMEPRAZOLE SODIUM
     Dates: start: 20210705, end: 20210710
  78. BENZYLPENICILLIN SODIUM [Concomitant]
     Active Substance: PENICILLIN G SODIUM
     Dates: start: 20210709, end: 20210709
  79. FOSAPREPITANT DIMEGLUMINE. [Concomitant]
     Active Substance: FOSAPREPITANT DIMEGLUMINE
     Indication: PROPHYLAXIS OF NAUSEA AND VOMITING
     Dates: start: 20210811, end: 20210811

REACTIONS (2)
  - Decreased appetite [Recovered/Resolved]
  - Fatigue [Not Recovered/Not Resolved]

NARRATIVE: CASE EVENT DATE: 20210701
